FAERS Safety Report 20216823 (Version 1)
Quarter: 2021Q4

REPORT INFORMATION
  Report Type: Spontaneous
  Country: DE (occurrence: DE)
  Receive Date: 20211222
  Receipt Date: 20211222
  Transmission Date: 20220303
  Serious: Yes (Hospitalization, Other)
  Sender: FDA-Public Use
  Company Number: DE-ADRED-07669-01

PATIENT
  Age: 61 Year
  Sex: Male
  Weight: 65 kg

DRUGS (16)
  1. FLUOROURACIL [Suspect]
     Active Substance: FLUOROURACIL
     Dosage: UNK
  2. DEXAMETHASONE [Suspect]
     Active Substance: DEXAMETHASONE
     Dosage: 0.5 DF
     Route: 048
  3. IRINOTECAN [Suspect]
     Active Substance: IRINOTECAN
     Dosage: UNK
  4. OXALIPLATIN [Suspect]
     Active Substance: OXALIPLATIN
     Dosage: UNK
  5. ONDANSETRON [Concomitant]
     Active Substance: ONDANSETRON
     Dosage: 8 MG, AS NEEDED, ORODISPERSIBLE TABLETS
     Route: 048
  6. APIXABAN [Concomitant]
     Active Substance: APIXABAN
     Dosage: 2.5 MG, 1-0-1-0, TABLETS
     Route: 048
  7. TORSEMIDE [Concomitant]
     Active Substance: TORSEMIDE
     Dosage: 10 MG, AS NEEDED, TABLETS
     Route: 048
  8. MORPHINE [Concomitant]
     Active Substance: MORPHINE
     Dosage: 10 MG, 1-1-0-1, SUSTAINED-RELEASE TABLETS
     Route: 048
  9. SULFAMETHOXAZOLE\TRIMETHOPRIM [Concomitant]
     Active Substance: SULFAMETHOXAZOLE\TRIMETHOPRIM
     Dosage: 800 | 160 MG, ACCORDING TO THE SCHEME, TABLETS
     Route: 048
  10. MORPHINE [Concomitant]
     Active Substance: MORPHINE
     Dosage: 10 MG, REQUIREMENT, SOLUTION
     Route: 048
  11. AMPHOTERICIN B [Concomitant]
     Active Substance: AMPHOTERICIN B
     Dosage: 100 MG, 1-1-1-1, JUICE
     Route: 048
  12. METAMIZOLE [METAMIZOLE SODIUM] [Concomitant]
     Dosage: 1000 MG, REQUIREMENT, DROPS
     Route: 048
  13. MIRTAZAPINE [Concomitant]
     Active Substance: MIRTAZAPINE
     Dosage: 30 MG, 0-0-0-1, TABLETS
     Route: 048
  14. LEUCOVORIN CALCIUM [Concomitant]
     Active Substance: LEUCOVORIN CALCIUM
     Dosage: ACCORDING TO THE SCHEME
  15. PANTOPRAZOLE [Concomitant]
     Active Substance: PANTOPRAZOLE
     Dosage: 40 MG, 1-0-0-0, SUSTAINED-RELEASE TABLETS
     Route: 048
  16. SIMETICON [Concomitant]
     Dosage: 70 MG, 3X, SUSPENSION
     Route: 048

REACTIONS (6)
  - Chills [Unknown]
  - General physical health deterioration [Unknown]
  - Pyrexia [Unknown]
  - Cough [Unknown]
  - Haemoptysis [Unknown]
  - Dyspnoea [Unknown]
